FAERS Safety Report 22230853 (Version 3)
Quarter: 2023Q4

REPORT INFORMATION
  Report Type: Report from Study
  Country: NL (occurrence: NL)
  Receive Date: 20230420
  Receipt Date: 20231010
  Transmission Date: 20240109
  Serious: Yes (Hospitalization, Other)
  Sender: FDA-Public Use
  Company Number: NL-ABBVIE-4339307

PATIENT
  Age: 73 Year
  Sex: Male

DRUGS (18)
  1. NEUPRO [Suspect]
     Active Substance: ROTIGOTINE
     Indication: Product used for unknown indication
     Dosage: FORM STRENGTH: 4 MG
     Route: 062
     Dates: start: 2023
  2. NEUPRO [Suspect]
     Active Substance: ROTIGOTINE
     Dosage: FORM STRENGTH: 8 MG
  3. CARBIDOPA\LEVODOPA [Suspect]
     Active Substance: CARBIDOPA\LEVODOPA
     Indication: Parkinson^s disease
     Dosage: MD: 13.0 ML, CD: 3.5 ML/H, ED: 3.0 ML, REMAINS AT 16 HOURS
     Dates: start: 2023, end: 2023
  4. CARBIDOPA\LEVODOPA [Suspect]
     Active Substance: CARBIDOPA\LEVODOPA
     Dosage: MD: 8.0 ML, CD: 2.5 ML/H, ED: 1.0 ML, REMAINS AT 16 HOURS
     Dates: start: 20220404
  5. CARBIDOPA\LEVODOPA [Suspect]
     Active Substance: CARBIDOPA\LEVODOPA
     Dosage: UNK
  6. CARBIDOPA\LEVODOPA [Suspect]
     Active Substance: CARBIDOPA\LEVODOPA
     Dosage: MD: 8.0 ML, CD: 2.5 ML/H, ED: 1.0 ML, REMAINS AT 16 HOURS
     Dates: start: 20230228, end: 2023
  7. CARBIDOPA\LEVODOPA [Suspect]
     Active Substance: CARBIDOPA\LEVODOPA
     Dosage: MD: 13.0 ML, CD: 4.0 ML/H, ED: 4.0 ML
  8. CARBIDOPA\LEVODOPA [Suspect]
     Active Substance: CARBIDOPA\LEVODOPA
     Dosage: UNK
  9. CARBIDOPA\LEVODOPA [Concomitant]
     Active Substance: CARBIDOPA\LEVODOPA
     Indication: Parkinson^s disease
     Dosage: 125 MILLIGRAM 3 TABLETS BEFORE THE NIGHT
     Route: 048
  10. CARBIDOPA\LEVODOPA [Concomitant]
     Active Substance: CARBIDOPA\LEVODOPA
     Dosage: 5 X 2 TABLETS AT 7, 10 AM, 1, 4, 7 PM
     Route: 048
  11. CARBIDOPA\LEVODOPA [Concomitant]
     Active Substance: CARBIDOPA\LEVODOPA
     Dosage: FORM STRENGTH: 125 MG, 3 TABLETS BEFORE THE NIGHT
     Route: 048
  12. CARBIDOPA\LEVODOPA [Concomitant]
     Active Substance: CARBIDOPA\LEVODOPA
     Dosage: FORM STRENGTH: 125 MG, 5 X 2 TABLETS AT 7, 10 AM, 1, 4, 7 PM
     Route: 048
     Dates: end: 20230228
  13. ENTACAPONE [Concomitant]
     Active Substance: ENTACAPONE
     Indication: Parkinson^s disease
     Dosage: 5 X 1 TABLET AT 7, 10 AM, 1, 4, 7 PM
     Route: 048
     Dates: end: 20230228
  14. ENTACAPONE [Concomitant]
     Active Substance: ENTACAPONE
     Dosage: 200 MILLIGRAM, 5 X 1 TABLET AT 7, 10 AM, 1, 4, 7 PM
     Route: 048
  15. DOMPERIDONE [Concomitant]
     Active Substance: DOMPERIDONE
     Indication: Product used for unknown indication
     Dosage: 10 MILLIGRAM, WHEN NECESSARY
  16. ROPINIROLE [Concomitant]
     Active Substance: ROPINIROLE
     Indication: Parkinson^s disease
     Dosage: 20 MILLIGRAM, 2 TABLETS OF 8 MG, 1 TABLET OF 4 MG
     Route: 048
  17. BENSERAZIDE HYDROCHLORIDE\LEVODOPA [Concomitant]
     Active Substance: BENSERAZIDE HYDROCHLORIDE\LEVODOPA
     Indication: Parkinson^s disease
     Dosage: 125 MILLIGRAM, WHEN NECESSARY
     Route: 048
  18. LACTULOSE [Concomitant]
     Active Substance: LACTULOSE
     Indication: Bowel movement irregularity
     Dosage: UNK

REACTIONS (21)
  - Blood pressure fluctuation [Not Recovered/Not Resolved]
  - Choking [Not Recovered/Not Resolved]
  - Syncope [Recovered/Resolved]
  - Loss of consciousness [Recovered/Resolved]
  - Stoma complication [Recovered/Resolved]
  - Weight decreased [Not Recovered/Not Resolved]
  - On and off phenomenon [Not Recovered/Not Resolved]
  - Middle insomnia [Unknown]
  - Gait disturbance [Not Recovered/Not Resolved]
  - Dyskinesia [Recovering/Resolving]
  - Reduced facial expression [Not Recovered/Not Resolved]
  - Nocturia [Not Recovered/Not Resolved]
  - Unevaluable event [Recovering/Resolving]
  - Walking aid user [Not Recovered/Not Resolved]
  - Infrequent bowel movements [Not Recovered/Not Resolved]
  - Bradykinesia [Not Recovered/Not Resolved]
  - Parkinsonian gait [Not Recovered/Not Resolved]
  - Posture abnormal [Not Recovered/Not Resolved]
  - Muscle rigidity [Not Recovered/Not Resolved]
  - Stoma site discharge [Not Recovered/Not Resolved]
  - Therapeutic product effect incomplete [Unknown]

NARRATIVE: CASE EVENT DATE: 20230101
